FAERS Safety Report 14892785 (Version 1)
Quarter: 2018Q2

REPORT INFORMATION
  Report Type: Spontaneous
  Country: US (occurrence: US)
  Receive Date: 20180514
  Receipt Date: 20180514
  Transmission Date: 20180711
  Serious: Yes (Other)
  Sender: FDA-Public Use
  Company Number: US-BIOMARINAP-US-2018-117885

PATIENT
  Age: 5 Year
  Sex: Male
  Weight: 20.41 kg

DRUGS (1)
  1. BRINEURA [Suspect]
     Active Substance: CERLIPONASE ALFA
     Indication: NEURONAL CEROID LIPOFUSCINOSIS
     Dosage: 300 MG, QOW
     Route: 020
     Dates: start: 20170717

REACTIONS (3)
  - Pseudomeningocele [Recovering/Resolving]
  - Medical device site oedema [Unknown]
  - Device leakage [Unknown]

NARRATIVE: CASE EVENT DATE: 20180410
